FAERS Safety Report 8312953-X (Version None)
Quarter: 2012Q2

REPORT INFORMATION
  Report Type: 
  Country: None (occurrence: None)
  Receive Date: 20120426
  Receipt Date: 20120418
  Transmission Date: 20120825
  Serious: Yes (Other)
  Sender: FDA-Public Use
  Company Number: CA-US-EMD SERONO, INC.-7117142

PATIENT
  Sex: Female

DRUGS (5)
  1. REBIF [Suspect]
     Indication: RELAPSING-REMITTING MULTIPLE SCLEROSIS
     Route: 058
     Dates: start: 20120109
  2. VITAMIN D [Concomitant]
     Indication: PRODUCT USED FOR UNKNOWN INDICATION
  3. MAGNESIUM [Concomitant]
     Indication: PRODUCT USED FOR UNKNOWN INDICATION
  4. IBUPROFEN (ADVIL) [Concomitant]
     Indication: PRODUCT USED FOR UNKNOWN INDICATION
  5. CALCIUM [Concomitant]
     Indication: PRODUCT USED FOR UNKNOWN INDICATION

REACTIONS (14)
  - FEELING ABNORMAL [None]
  - DISCOMFORT [None]
  - VISION BLURRED [None]
  - INSOMNIA [None]
  - ASPARTATE AMINOTRANSFERASE INCREASED [None]
  - INJECTION SITE REACTION [None]
  - DRUG DOSE OMISSION [None]
  - NAUSEA [None]
  - INJECTION SITE INJURY [None]
  - GAMMA-GLUTAMYLTRANSFERASE INCREASED [None]
  - PARAESTHESIA ORAL [None]
  - MUSCULOSKELETAL STIFFNESS [None]
  - PAIN [None]
  - GALLBLADDER OPERATION [None]
